FAERS Safety Report 9399742 (Version 1)
Quarter: 2013Q3

REPORT INFORMATION
  Report Type: Spontaneous
  Country: JP (occurrence: JP)
  Receive Date: 20130710
  Receipt Date: 20130710
  Transmission Date: 20140515
  Serious: Yes (Other)
  Sender: FDA-Public Use
  Company Number: SYM-2013-05348

PATIENT
  Sex: 0

DRUGS (3)
  1. FLUOROURACIL [Suspect]
     Indication: OESOPHAGEAL CARCINOMA
     Dosage: DOSAGE TAKEN ON DAYS 1-5 OF EACH MONTH OF CHEMOTHERAPY.
  2. DOCETAXEL [Suspect]
     Indication: OESOPHAGEAL CARCINOMA
     Dosage: DOSAGE TAKEN ON DAY 1 OF CHEMOTHERAPY.
  3. CISPLATIN [Suspect]
     Indication: OESOPHAGEAL CARCINOMA
     Dosage: DOSAGE TAKEN ON DAYS 1-5 OF CHEMOTHERAPY.

REACTIONS (2)
  - Neutropenia [None]
  - Haematotoxicity [None]
